FAERS Safety Report 12351708 (Version 1)
Quarter: 2016Q2

REPORT INFORMATION
  Report Type: Spontaneous
  Country: US (occurrence: US)
  Receive Date: 20160510
  Receipt Date: 20160510
  Transmission Date: 20160815
  Serious: Yes (Other)
  Sender: FDA-Public Use
  Company Number: US-SMITH AND NEPHEW, INC-2016SMT00371

PATIENT
  Age: 53 Year
  Sex: Male

DRUGS (1)
  1. REGRANEX [Suspect]
     Active Substance: BECAPLERMIN
     Indication: WOUND

REACTIONS (3)
  - Off label use [Unknown]
  - Bone operation [Recovered/Resolved with Sequelae]
  - Osteomyelitis [Recovered/Resolved with Sequelae]

NARRATIVE: CASE EVENT DATE: 201604
